FAERS Safety Report 17682237 (Version 2)
Quarter: 2023Q4

REPORT INFORMATION
  Report Type: Spontaneous
  Country: ES (occurrence: ES)
  Receive Date: 20200418
  Receipt Date: 20231117
  Transmission Date: 20240110
  Serious: Yes (Hospitalization, Other)
  Sender: FDA-Public Use
  Company Number: ES-AEMPS-620338

PATIENT
  Age: 86 Year
  Sex: Male

DRUGS (5)
  1. ENALAPRIL [Interacting]
     Active Substance: ENALAPRIL
     Indication: Hypertension
     Dosage: 20 MILLIGRAM, ONCE A DAY
     Route: 048
     Dates: start: 20071024, end: 20171218
  2. FUROSEMIDE [Interacting]
     Active Substance: FUROSEMIDE
     Indication: Ascites
     Dosage: 60 MILLIGRAM, ONCE A DAY
     Route: 048
     Dates: start: 20171212, end: 20171218
  3. RIFAXIMIN [Concomitant]
     Active Substance: RIFAXIMIN
     Indication: Hepatic cirrhosis
     Dosage: 1.2 GRAM, ONCE A DAY
     Route: 048
     Dates: start: 20171127
  4. EMPORTAL [Concomitant]
     Indication: Hepatic cirrhosis
     Dosage: 60 GRAM, ONCE A DAY
     Route: 048
     Dates: start: 20170907
  5. ALLOPURINOL [Concomitant]
     Active Substance: ALLOPURINOL
     Indication: Gout
     Dosage: 10 MILLIGRAM, ONCE A DAY
     Route: 048
     Dates: start: 20151024, end: 20171218

REACTIONS (2)
  - Acute kidney injury [Recovered/Resolved]
  - Drug interaction [Unknown]

NARRATIVE: CASE EVENT DATE: 20171212
